FAERS Safety Report 24579267 (Version 3)
Quarter: 2024Q4

REPORT INFORMATION
  Report Type: Spontaneous
  Country: US (occurrence: US)
  Receive Date: 20241105
  Receipt Date: 20241113
  Transmission Date: 20250115
  Serious: No
  Sender: BIOGEN
  Company Number: US-BIOGEN-2024BI01268533

PATIENT
  Sex: Female

DRUGS (1)
  1. VUMERITY [Suspect]
     Active Substance: DIROXIMEL FUMARATE
     Indication: Multiple sclerosis
     Dosage: 10-MAY-2024
     Route: 050
     Dates: start: 20240509

REACTIONS (8)
  - Multiple sclerosis [Unknown]
  - Stress [Unknown]
  - Head injury [Unknown]
  - Depression [Unknown]
  - Fall [Recovered/Resolved]
  - Flushing [Unknown]
  - Diarrhoea [Unknown]
  - Abdominal pain upper [Recovered/Resolved]

NARRATIVE: CASE EVENT DATE: 20240101
